FAERS Safety Report 9444512 (Version 1)
Quarter: 2013Q3

REPORT INFORMATION
  Report Type: Spontaneous
  Country: US (occurrence: None)
  Receive Date: 20130806
  Receipt Date: 20130806
  Transmission Date: 20140515
  Serious: No
  Sender: FDA-Public Use
  Company Number: None

PATIENT
  Age: 56 Year
  Sex: Female
  Weight: 72.58 kg

DRUGS (1)
  1. TRAMADOL [Suspect]
     Dosage: 2 PILLS (TOTAL 100 MG) TWICE DAILY TAKEN BY MOUTH
     Route: 048
     Dates: start: 20130801, end: 20130805

REACTIONS (3)
  - Product substitution issue [None]
  - Product quality issue [None]
  - Inadequate analgesia [None]
